FAERS Safety Report 6142113-2 (Version None)
Quarter: 2009Q2

REPORT INFORMATION
  Report Type: 
  Country: None (occurrence: None)
  Receive Date: 20090402
  Receipt Date: 20090331
  Transmission Date: 20091009
  Serious: Yes (Life-Threatening, Hospitalization)
  Sender: FDA-Public Use
  Company Number: BR-ASTRAZENECA-2009UW07623

PATIENT
  Age: 50 Year
  Sex: Male

DRUGS (20)
  1. SEROQUEL [Suspect]
     Indication: CONFUSIONAL STATE
     Dosage: 100 MG PLUS 25 MG
     Route: 048
  2. SEROQUEL [Suspect]
     Indication: RESTLESSNESS
     Dosage: 100 MG PLUS 25 MG
     Route: 048
  3. SEROQUEL [Suspect]
     Route: 048
  4. SEROQUEL [Suspect]
     Route: 048
  5. SEROQUEL [Suspect]
     Route: 048
  6. SEROQUEL [Suspect]
     Route: 048
  7. SEROQUEL XR [Suspect]
     Indication: CONFUSIONAL STATE
     Route: 048
  8. SEROQUEL XR [Suspect]
     Indication: RESTLESSNESS
     Route: 048
  9. METICORTEN [Concomitant]
  10. FLORINEF [Concomitant]
     Route: 048
  11. LIORESAL [Concomitant]
  12. GABAPENTIN [Concomitant]
  13. TYLENOL [Concomitant]
  14. NOVALGINA [Concomitant]
  15. TRAMADOL [Concomitant]
  16. PLAMET [Concomitant]
     Indication: NAUSEA
  17. CAPOTEN [Concomitant]
  18. BEROTEC [Concomitant]
     Route: 055
  19. ATROVENT [Concomitant]
     Route: 055
  20. TIGECYCLINE [Concomitant]

REACTIONS (3)
  - BRADYCARDIA [None]
  - COMA [None]
  - GENERAL PHYSICAL HEALTH DETERIORATION [None]
